FAERS Safety Report 9868043 (Version 2)
Quarter: 2014Q1

REPORT INFORMATION
  Report Type: Spontaneous
  Country: DE (occurrence: DE)
  Receive Date: 20140204
  Receipt Date: 20140303
  Transmission Date: 20141002
  Serious: Yes (Hospitalization)
  Sender: FDA-Public Use
  Company Number: PHHY2014DE012399

PATIENT
  Sex: Female
  Weight: 47 kg

DRUGS (4)
  1. EXELON PATCH [Suspect]
     Indication: DEMENTIA
     Dosage: 4.6 MG/ 24 HOURS
     Route: 062
     Dates: start: 201310, end: 20140203
  2. TRILEPTAL [Concomitant]
     Indication: EPILEPSY
     Dosage: 600 MG, BID
     Route: 048
     Dates: start: 201010
  3. MYLEPSINUM [Concomitant]
     Indication: EPILEPSY
     Dosage: 500 MG, QD
     Route: 048
  4. BISOHEXAL [Concomitant]
     Indication: BLOOD PRESSURE AMBULATORY INCREASED
     Dosage: 5 MG, QD
     Route: 048
     Dates: start: 2010

REACTIONS (3)
  - Pelvic fracture [Recovering/Resolving]
  - Fall [Recovering/Resolving]
  - Diarrhoea [Recovering/Resolving]
